FAERS Safety Report 6912270-6 (Version None)
Quarter: 2010Q3

REPORT INFORMATION
  Report Type: 
  Country: None (occurrence: None)
  Receive Date: 20100806
  Receipt Date: 20080317
  Transmission Date: 20110219
  Serious: No
  Sender: FDA-Public Use
  Company Number: US-PFIZER INC-2008021565

PATIENT
  Sex: Female
  Weight: 68.181 kg

DRUGS (7)
  1. DETROL LA [Suspect]
     Indication: HYPERTONIC BLADDER
     Dates: start: 20080201, end: 20080211
  2. PLAVIX [Concomitant]
  3. ARICEPT [Concomitant]
  4. CRESTOR [Concomitant]
  5. ARAVA [Concomitant]
  6. THYROID TAB [Concomitant]
  7. LISINOPRIL [Concomitant]

REACTIONS (1)
  - POLLAKIURIA [None]
